FAERS Safety Report 8936876 (Version 2)
Quarter: 2013Q1

REPORT INFORMATION
  Report Type: Spontaneous
  Country: CH (occurrence: CH)
  Receive Date: 20121130
  Receipt Date: 20130208
  Transmission Date: 20140127
  Serious: Yes (Hospitalization, Other)
  Sender: FDA-Public Use
  Company Number: PHHY2012CH109829

PATIENT
  Age: 42 Year
  Sex: Female

DRUGS (6)
  1. GILENYA [Suspect]
     Indication: MULTIPLE SCLEROSIS
     Dosage: 0.5 MG, QD
     Route: 048
     Dates: start: 20110816
  2. EUTHYROX [Concomitant]
     Indication: HYPERTHYROIDISM
     Dosage: UNK, QD
     Dates: start: 2010
  3. CITALOPRAM [Concomitant]
     Indication: DEPRESSION
     Dosage: UNK, QD
     Dates: start: 2010
  4. LYRICA [Concomitant]
     Indication: PAIN
     Dosage: UNK, QD
     Dates: start: 2010
  5. ALENDRONAT [Concomitant]
     Indication: OSTEOPOROSIS
     Dosage: UNK
     Dates: start: 2010
  6. CALCIUM D3 [Concomitant]

REACTIONS (2)
  - Breast cancer [Unknown]
  - Oedema [Unknown]
